FAERS Safety Report 4541030-9 (Version None)
Quarter: 2004Q4

REPORT INFORMATION
  Report Type: 
  Country: None (occurrence: None)
  Receive Date: 20041228
  Receipt Date: 20041213
  Transmission Date: 20050328
  Serious: Yes (Hospitalization, Other)
  Sender: FDA-Public Use
  Company Number: JP-2004-035946

PATIENT
  Age: 44 Year
  Sex: Male
  Weight: 56.8 kg

DRUGS (6)
  1. FLUDARA [Suspect]
     Indication: STEM CELL TRANSPLANT
     Dosage: 49 MG, 1X/DAY, INTRAVENOUS
     Route: 042
     Dates: start: 20040113, end: 20040118
  2. BUSULFAN [Concomitant]
  3. ANTITHYMOCYTE IMMUNOGLOBULIN (RABBIT) (ANTITHYMOCYTE IMMUNOGLOBULIN RA [Concomitant]
  4. CYCLOSPORINE [Concomitant]
  5. NEORAL [Concomitant]
  6. CRAVIT (LEVOFLOXACIN) TABLET [Concomitant]

REACTIONS (13)
  - ATELECTASIS [None]
  - BACK PAIN [None]
  - CHEST PAIN [None]
  - DYSPNOEA EXERTIONAL [None]
  - GRAFT VERSUS HOST DISEASE [None]
  - HAEMOPTYSIS [None]
  - HAEMOTHORAX [None]
  - LIVER DISORDER [None]
  - LUNG INFILTRATION [None]
  - MALIGNANT NEOPLASM PROGRESSION [None]
  - METASTASES TO LUNG [None]
  - PLEURAL EFFUSION [None]
  - PYREXIA [None]
